FAERS Safety Report 4274593-1 (Version None)
Quarter: 2004Q1

REPORT INFORMATION
  Report Type: 
  Country: None (occurrence: None)
  Receive Date: 20040115
  Receipt Date: 20040106
  Transmission Date: 20041129
  Serious: Yes (Hospitalization)
  Sender: FDA-Public Use
  Company Number: HQWYE103006JAN04

PATIENT
  Sex: Male

DRUGS (7)
  1. ANCARON (AMIODARONE, TABLET) [Suspect]
     Indication: ATRIAL FIBRILLATION
     Dosage: 100 MG 1X PER 1 DAY
     Route: 048
     Dates: start: 20031126, end: 20031224
  2. NU-LOTAN (LOSARTAN POTASSIUM) [Suspect]
     Indication: HYPERTENSION
     Dosage: 25MG 2X PER 1 DAY
     Route: 048
     Dates: start: 20031209, end: 20031222
  3. TORSEMIDE [Suspect]
     Indication: CARDIAC FAILURE CONGESTIVE
     Dosage: 4 MG 1X PER 1 DAY
     Route: 048
     Dates: start: 20031209, end: 20031222
  4. MUCOSTA (REBAMIPIDE) [Concomitant]
  5. ALDACTONE [Concomitant]
  6. BAYASPIRINIA (ACETYSALICYLIC ACID) [Concomitant]
  7. LASXI (FUROSEMIDE) [Concomitant]

REACTIONS (1)
  - DRUG ERUPTION [None]
